FAERS Safety Report 4648799-3 (Version None)
Quarter: 2005Q2

REPORT INFORMATION
  Report Type: 
  Country: None (occurrence: None)
  Receive Date: 20050427
  Receipt Date: 20050413
  Transmission Date: 20051028
  Serious: Yes (Other)
  Sender: FDA-Public Use
  Company Number: SUSI-2005-00283

PATIENT
  Age: 22 Year
  Sex: Male
  Weight: 76.2 kg

DRUGS (3)
  1. PENTASA [Suspect]
     Indication: CROHN'S DISEASE
     Dosage: 500 MG, 2X/DAY:BID, ORAL
     Route: 048
     Dates: start: 20050328
  2. ALLEGRA-D-SLOW RELEASE (FEXOFENADINE HYDROCHLORIDE) [Concomitant]
  3. IMODIUM [Concomitant]

REACTIONS (1)
  - RENAL FAILURE [None]
